FAERS Safety Report 12569756 (Version 1)
Quarter: 2016Q3

REPORT INFORMATION
  Report Type: Spontaneous
  Country: US (occurrence: None)
  Receive Date: 20160718
  Receipt Date: 20160718
  Transmission Date: 20161109
  Serious: Yes (Other)
  Sender: FDA-Public Use
  Company Number: None

PATIENT
  Age: 45 Year
  Sex: Female
  Weight: 61.24 kg

DRUGS (5)
  1. CHEWABLE VITAMINS [Concomitant]
  2. OMEPRAZOLE. [Concomitant]
     Active Substance: OMEPRAZOLE
  3. ORGANIC COCONUT OIL [Concomitant]
  4. DOXYCYCLINE HYCLATE 100 MG CAP, 100 MG MUTUAL PHARM CO [Suspect]
     Active Substance: DOXYCYCLINE HYCLATE
     Indication: DERMAL CYST
     Dosage: 20 CAPSULE(S) TWICE A DAY TAKEN BY MOUTH
     Route: 048
     Dates: start: 20160518, end: 20160528
  5. GINGER ROOT [Concomitant]
     Active Substance: GINGER

REACTIONS (11)
  - Dysphagia [None]
  - Anxiety [None]
  - Gastritis [None]
  - Paranasal sinus discomfort [None]
  - Pharyngeal oedema [None]
  - Oesophagitis [None]
  - Gastrooesophageal reflux disease [None]
  - Lymphadenopathy [None]
  - Panic reaction [None]
  - Oropharyngeal pain [None]
  - Choking [None]

NARRATIVE: CASE EVENT DATE: 20160601
